FAERS Safety Report 8406959-X (Version None)
Quarter: 2012Q2

REPORT INFORMATION
  Report Type: 
  Country: None (occurrence: None)
  Receive Date: 20120604
  Receipt Date: 20120524
  Transmission Date: 20120825
  Serious: Yes (Other)
  Sender: FDA-Public Use
  Company Number: CA-JNJFOC-20120510475

PATIENT

DRUGS (3)
  1. XARELTO [Suspect]
     Indication: THROMBOSIS PROPHYLAXIS
     Route: 065
  2. TRANEXAMIC ACID [Concomitant]
  3. OCTAPLEX [Concomitant]

REACTIONS (3)
  - REVISION OF INTERNAL FIXATION [None]
  - CLOTTING FACTOR TRANSFUSION [None]
  - HAEMATOMA INFECTION [None]
